FAERS Safety Report 9197560 (Version 1)
Quarter: 2013Q1

REPORT INFORMATION
  Report Type: Spontaneous
  Country: JP (occurrence: JP)
  Receive Date: 20130328
  Receipt Date: 20130328
  Transmission Date: 20140127
  Serious: Yes (Other)
  Sender: FDA-Public Use
  Company Number: JP-GLAXOSMITHKLINE-B0877214A

PATIENT
  Age: 74 Year
  Sex: Female

DRUGS (2)
  1. LAMICTAL [Suspect]
     Indication: EPILEPSY
     Route: 048
  2. UNKNOWN DRUG [Concomitant]
     Indication: EPILEPSY
     Route: 048

REACTIONS (6)
  - Drug reaction with eosinophilia and systemic symptoms [Unknown]
  - Generalised erythema [Unknown]
  - Lip oedema [Unknown]
  - Odynophagia [Unknown]
  - Pyrexia [Unknown]
  - Rash [Unknown]
